FAERS Safety Report 5156683-4 (Version None)
Quarter: 2006Q4

REPORT INFORMATION
  Report Type: 
  Country: None (occurrence: None)
  Receive Date: 20061115
  Receipt Date: 20061030
  Transmission Date: 20070319
  Serious: Yes (Hospitalization)
  Sender: FDA-Public Use
  Company Number: DSA_28932_2006

PATIENT
  Sex: Male
  Weight: 1.88 kg

DRUGS (2)
  1. TAVOR [Suspect]
     Dosage: VAR Q DAY TRAN-P
     Route: 064
     Dates: start: 20060101, end: 20060813
  2. INSIDON [Concomitant]

REACTIONS (5)
  - BRADYCARDIA NEONATAL [None]
  - DRUG EXPOSURE DURING PREGNANCY [None]
  - POOR SUCKING REFLEX [None]
  - PREMATURE BABY [None]
  - PREMATURE RUPTURE OF MEMBRANES [None]
